FAERS Safety Report 15722514 (Version 1)
Quarter: 2018Q4

REPORT INFORMATION
  Report Type: Spontaneous
  Country: US (occurrence: US)
  Receive Date: 20181213
  Receipt Date: 20181213
  Transmission Date: 20190205
  Serious: Yes (Hospitalization)
  Sender: FDA-Public Use
  Company Number: None

PATIENT
  Age: 67 Year
  Sex: Female
  Weight: 54.2 kg

DRUGS (4)
  1. FLUDARABINE PHOSPHATE. [Concomitant]
     Active Substance: FLUDARABINE PHOSPHATE
     Dates: start: 20180706, end: 20180708
  2. DEXAMETHASONE. [Concomitant]
     Active Substance: DEXAMETHASONE
     Dates: start: 20180721, end: 20180726
  3. AXICABTAGENE CILOLEUCEL [Suspect]
     Active Substance: AXICABTAGENE CILOLEUCEL
     Indication: DIFFUSE LARGE B-CELL LYMPHOMA
     Dosage: ?          OTHER FREQUENCY:ONCE;OTHER ROUTE:INFUSED VIA CENTRAL LINE?
     Dates: start: 20180711, end: 20180711
  4. CYCLOPHOSPHAMIDE. [Concomitant]
     Active Substance: CYCLOPHOSPHAMIDE
     Dates: start: 20180706, end: 20180708

REACTIONS (12)
  - Hypophagia [None]
  - Amnesia [None]
  - Cytokine release syndrome [None]
  - Toxic encephalopathy [None]
  - Pruritus [None]
  - Back pain [None]
  - Aphasia [None]
  - Depressed mood [None]
  - Seizure [None]
  - Febrile neutropenia [None]
  - Fatigue [None]
  - Atelectasis [None]

NARRATIVE: CASE EVENT DATE: 20180721
